FAERS Safety Report 24729151 (Version 3)
Quarter: 2025Q1

REPORT INFORMATION
  Report Type: Spontaneous
  Country: US (occurrence: US)
  Receive Date: 20241213
  Receipt Date: 20250210
  Transmission Date: 20250409
  Serious: No
  Sender: ROCHE
  Company Number: US-ROCHE-10000153537

PATIENT
  Age: 59 Year
  Sex: Male
  Weight: 97.98 kg

DRUGS (15)
  1. ACTEMRA [Suspect]
     Active Substance: TOCILIZUMAB
     Indication: Giant cell arteritis
     Dosage: STRENGTH: 162/0.9 MG/ML
     Route: 058
     Dates: start: 2023
  2. ACTEMRA [Suspect]
     Active Substance: TOCILIZUMAB
     Route: 058
     Dates: start: 202310
  3. MAXITROL [Suspect]
     Active Substance: DEXAMETHASONE\NEOMYCIN SULFATE\POLYMYXIN B SULFATE
     Indication: Lacrimation increased
     Route: 065
     Dates: start: 202312
  4. GLUCOPHAGE [Concomitant]
     Active Substance: METFORMIN HYDROCHLORIDE
  5. PREDNISONE [Concomitant]
     Active Substance: PREDNISONE
  6. SERTRALINE [Concomitant]
     Active Substance: SERTRALINE HYDROCHLORIDE
  7. LOVASTATIN [Concomitant]
     Active Substance: LOVASTATIN
  8. LISINOPRIL [Concomitant]
     Active Substance: LISINOPRIL
  9. ACTOS [Concomitant]
     Active Substance: PIOGLITAZONE HYDROCHLORIDE
  10. LATANOPROST [Concomitant]
     Active Substance: LATANOPROST
  11. BRIMONIDINE TARTRATE [Concomitant]
     Active Substance: BRIMONIDINE TARTRATE
  12. ZOLOFT [Concomitant]
     Active Substance: SERTRALINE HYDROCHLORIDE
  13. LOTRISONE [Concomitant]
     Active Substance: BETAMETHASONE DIPROPIONATE\CLOTRIMAZOLE
  14. GLIPIZIDE XL [Concomitant]
     Active Substance: GLIPIZIDE
  15. CIPROFLOXACIN HYDROCHLORIDE\HYDROCORTISONE [Concomitant]
     Active Substance: CIPROFLOXACIN HYDROCHLORIDE\HYDROCORTISONE

REACTIONS (8)
  - Ear infection [Recovered/Resolved]
  - Dizziness [Not Recovered/Not Resolved]
  - Acne [Recovering/Resolving]
  - Eye irritation [Unknown]
  - Gastrointestinal disorder [Unknown]
  - Middle ear effusion [Not Recovered/Not Resolved]
  - Blood bilirubin increased [Unknown]
  - Haemoglobin increased [Unknown]

NARRATIVE: CASE EVENT DATE: 20241209
